FAERS Safety Report 9803934 (Version 1)
Quarter: 2014Q1

REPORT INFORMATION
  Report Type: Spontaneous
  Country: AU (occurrence: AU)
  Receive Date: 20140108
  Receipt Date: 20140108
  Transmission Date: 20141002
  Serious: Yes (Other)
  Sender: FDA-Public Use
  Company Number: AU-PFIZER INC-2014002635

PATIENT
  Sex: Female

DRUGS (4)
  1. NEURONTIN [Suspect]
     Indication: NEURALGIA
     Dosage: UNK
     Dates: start: 201310
  2. NEURONTIN [Suspect]
     Dosage: 900 MG, DAILY
  3. OXYCONTIN [Concomitant]
     Dosage: UNK
  4. XALATAN [Concomitant]
     Dosage: UNK

REACTIONS (5)
  - Brain injury [Unknown]
  - Mental status changes [Unknown]
  - Aggression [Unknown]
  - Rash [Unknown]
  - Urticaria [Unknown]
